FAERS Safety Report 9916310 (Version 3)
Quarter: 2014Q2

REPORT INFORMATION
  Report Type: Spontaneous
  Country: US (occurrence: None)
  Receive Date: 20140219
  Receipt Date: 20140407
  Transmission Date: 20141212
  Serious: Yes (Hospitalization)
  Sender: FDA-Public Use
  Company Number: UTC-043137

PATIENT
  Age: 42 Year
  Sex: Female
  Weight: 94.54 kg

DRUGS (5)
  1. TYVASO [Suspect]
     Indication: PULMONARY ARTERIAL HYPERTENSION
     Route: 055
     Dates: start: 20140109
  2. TYVASO [Suspect]
     Indication: PULMONARY ARTERIAL HYPERTENSION
     Route: 055
     Dates: start: 20140109
  3. ADCIRCA (TADALAFIL) [Concomitant]
  4. COUMADIN (WARFARIN) [Concomitant]
  5. LETAIRIS (AMBRISENTAN) (TABLETS) [Concomitant]

REACTIONS (2)
  - Dyspnoea [None]
  - Dyspnoea [None]
